FAERS Safety Report 7678827-2 (Version None)
Quarter: 2011Q3

REPORT INFORMATION
  Report Type: 
  Country: None (occurrence: None)
  Receive Date: 20110812
  Receipt Date: 20110804
  Transmission Date: 20111222
  Serious: Yes (Other)
  Sender: FDA-Public Use
  Company Number: DK-BRISTOL-MYERS SQUIBB COMPANY-15947641

PATIENT
  Age: 68 Year
  Sex: Female
  Weight: 81 kg

DRUGS (6)
  1. LANSOPRAZOLE [Concomitant]
     Indication: GASTROOESOPHAGEAL REFLUX DISEASE
     Dates: start: 20070301
  2. IMIPRAMINE [Concomitant]
     Indication: DEPRESSION
     Dates: start: 19980310
  3. ONGLYZA [Suspect]
  4. BACLOFEN [Concomitant]
     Indication: MUSCLE SPASMS
     Dates: start: 20091223
  5. ASPIRIN [Concomitant]
     Dates: start: 20050822
  6. SIMVASTATIN [Concomitant]
     Indication: HYPERCHOLESTEROLAEMIA
     Dates: start: 20080507

REACTIONS (4)
  - MUSCULOSKELETAL PAIN [None]
  - CHEST DISCOMFORT [None]
  - ANGIOEDEMA [None]
  - PRURITUS [None]
